FAERS Safety Report 8854394 (Version 3)
Quarter: 2013Q1

REPORT INFORMATION
  Report Type: Report from Study
  Country: US (occurrence: US)
  Receive Date: 20121023
  Receipt Date: 20130116
  Transmission Date: 20140127
  Serious: No
  Sender: FDA-Public Use
  Company Number: US-VERTEX PHARMACEUTICAL INC.-2012-023076

PATIENT
  Age: 59 None
  Sex: Male

DRUGS (6)
  1. VX-950 (TELAPREVIR) [Suspect]
     Indication: HEPATITIS C
     Dosage: 750 MG, TID
     Route: 048
     Dates: start: 20120726
  2. PEGASYS [Suspect]
     Indication: HEPATITIS C
     Dosage: 180 ?G, QW
     Route: 058
     Dates: start: 20120726
  3. RIBASPHERE [Suspect]
     Indication: HEPATITIS C
     Dosage: 600 MG, BID
     Route: 048
     Dates: start: 20120726
  4. RIBASPHERE [Suspect]
     Dosage: 3 DF, QD
     Route: 048
  5. NORVASC [Concomitant]
     Dosage: 1 DF, QD
     Route: 048
  6. DIOVAN HCT [Concomitant]
     Dosage: 172.5 MG, QD
     Route: 048

REACTIONS (3)
  - Cough [Unknown]
  - Fatigue [Unknown]
  - Anaemia [Recovered/Resolved]
